FAERS Safety Report 8792794 (Version 1)
Quarter: 2012Q4

REPORT INFORMATION
  Report Type: Report from Study
  Country: IT (occurrence: IT)
  Receive Date: 20120918
  Receipt Date: 20120918
  Transmission Date: 20130627
  Serious: Yes (Hospitalization)
  Sender: FDA-Public Use
  Company Number: IT-JNJFOC-20120907736

PATIENT
  Age: 67 Year
  Sex: Male
  Weight: 85 kg

DRUGS (43)
  1. RIVAROXABAN [Suspect]
     Indication: THROMBOSIS PROPHYLAXIS
     Route: 048
     Dates: start: 20101102, end: 20101204
  2. RIVAROXABAN [Suspect]
     Indication: HIP ARTHROPLASTY
     Route: 048
     Dates: start: 20101102, end: 20101204
  3. ZANTAC [Concomitant]
     Indication: PROPHYLAXIS
     Dates: start: 20101114, end: 20101114
  4. ZANTAC [Concomitant]
     Indication: PROPHYLAXIS
     Dates: start: 20101107, end: 20101109
  5. ZANTAC [Concomitant]
     Indication: PROPHYLAXIS
     Dates: start: 20101102, end: 20101103
  6. ZANTAC [Concomitant]
     Indication: PROPHYLAXIS
     Dates: start: 20101105, end: 20101106
  7. ZANTAC [Concomitant]
     Indication: PROPHYLAXIS
     Dates: start: 20101105, end: 20101106
  8. ZANTAC [Concomitant]
     Indication: PROPHYLAXIS
     Dates: start: 20101107, end: 20101109
  9. ZANTAC [Concomitant]
     Indication: PROPHYLAXIS
     Dates: start: 20101102, end: 20101103
  10. ZANTAC [Concomitant]
     Indication: PROPHYLAXIS
     Dates: start: 20101114, end: 20101114
  11. ZANTAC [Concomitant]
     Indication: PROPHYLAXIS
     Dates: start: 20101105, end: 20101106
  12. ZANTAC [Concomitant]
     Indication: PROPHYLAXIS
     Dates: start: 20101107, end: 20101109
  13. ZANTAC [Concomitant]
     Indication: PROPHYLAXIS
     Dates: start: 20101114, end: 20101114
  14. ZANTAC [Concomitant]
     Indication: PROPHYLAXIS
     Dates: start: 20101102, end: 20101103
  15. ZANTAC [Concomitant]
     Indication: PROPHYLAXIS
     Dates: start: 20101105, end: 20101106
  16. ZANTAC [Concomitant]
     Indication: PROPHYLAXIS
     Dates: start: 20101102, end: 20101103
  17. ZANTAC [Concomitant]
     Indication: PROPHYLAXIS
     Dates: start: 20101114, end: 20101114
  18. ZANTAC [Concomitant]
     Indication: PROPHYLAXIS
     Dates: start: 20101107, end: 20101109
  19. PANTORC [Concomitant]
     Indication: GASTRITIS
  20. TACHIPIRINA [Concomitant]
     Indication: HYPERPYREXIA
     Dates: start: 20101105, end: 20101105
  21. CALCIUM GLUCONAT [Concomitant]
     Indication: HYPOCALCAEMIA
     Dates: start: 20101110, end: 20101110
  22. TORADOL [Concomitant]
     Indication: PAIN
     Dates: start: 20101114, end: 20101114
  23. TORADOL [Concomitant]
     Indication: PAIN
     Dates: start: 20101102, end: 20101103
  24. TORADOL [Concomitant]
     Indication: PAIN
     Dates: start: 20101105, end: 20101106
  25. TORADOL [Concomitant]
     Indication: PAIN
     Dates: start: 20101107, end: 20101109
  26. TORADOL [Concomitant]
     Indication: PAIN
     Dates: start: 20101114, end: 20101114
  27. TORADOL [Concomitant]
     Indication: PAIN
     Dates: start: 20101107, end: 20101109
  28. TORADOL [Concomitant]
     Indication: PAIN
     Dates: start: 20101105, end: 20101106
  29. TORADOL [Concomitant]
     Indication: PAIN
     Dates: start: 20101102, end: 20101103
  30. TORADOL [Concomitant]
     Indication: PAIN
     Dates: start: 20101105, end: 20101106
  31. TORADOL [Concomitant]
     Indication: PAIN
     Dates: start: 20101114, end: 20101114
  32. TORADOL [Concomitant]
     Indication: PAIN
     Dates: start: 20101107, end: 20101109
  33. TORADOL [Concomitant]
     Indication: PAIN
     Dates: start: 20101102, end: 20101103
  34. TORADOL [Concomitant]
     Indication: PAIN
     Dates: start: 20101107, end: 20101109
  35. TORADOL [Concomitant]
     Indication: PAIN
     Dates: start: 20101105, end: 20101106
  36. TORADOL [Concomitant]
     Indication: PAIN
     Dates: start: 20101102, end: 20101103
  37. TORADOL [Concomitant]
     Indication: PAIN
     Dates: start: 20101114, end: 20101114
  38. EPTADONE [Concomitant]
     Indication: PAIN
     Dates: start: 20101102, end: 20101102
  39. FUCICORT [Concomitant]
     Indication: FOLLICULITIS
     Dates: start: 20101112, end: 20101114
  40. EN [Concomitant]
     Indication: INSOMNIA
     Dates: start: 20101104, end: 20101104
  41. CIPROFLOXACIN [Concomitant]
     Indication: HYPERPYREXIA
     Dates: start: 20101107, end: 20101115
  42. TRIATEC [Concomitant]
     Indication: HYPERTENSION
     Dates: start: 2000
  43. PERFALGAN [Concomitant]
     Indication: PAIN
     Dates: start: 20101102, end: 20101102

REACTIONS (2)
  - Anaemia [Recovering/Resolving]
  - Haematoma [Recovering/Resolving]
